FAERS Safety Report 4439932-7 (Version None)
Quarter: 2004Q3

REPORT INFORMATION
  Report Type: 
  Country: None (occurrence: None)
  Receive Date: 20040831
  Receipt Date: 20040819
  Transmission Date: 20050211
  Serious: Yes (Life-Threatening)
  Sender: FDA-Public Use
  Company Number: 04H-153-0271270-00

PATIENT
  Age: 2 Day
  Sex: Male
  Weight: 3.678 kg

DRUGS (4)
  1. CIMETIDINE HCL [Suspect]
     Indication: GASTROINTESTINAL HAEMORRHAGE
     Dosage: 2 MG, 1 IN 6 HR, INTRAVENOUS
     Route: 042
  2. TOLAZOLINE [Suspect]
     Indication: OXYGEN SATURATION ABNORMAL
     Dosage: SEE IMAGE
     Route: 040
  3. ALUMINIUM MAGESIA [Concomitant]
  4. OXYGEN [Concomitant]

REACTIONS (6)
  - DRUG INTERACTION [None]
  - FLUSHING [None]
  - NEONATAL DISORDER [None]
  - OXYGEN SATURATION DECREASED [None]
  - PO2 DECREASED [None]
  - UPPER GASTROINTESTINAL HAEMORRHAGE [None]
